FAERS Safety Report 7591562-4 (Version None)
Quarter: 2011Q2

REPORT INFORMATION
  Report Type: 
  Country: None (occurrence: None)
  Receive Date: 20110627
  Receipt Date: 20110610
  Transmission Date: 20111010
  Serious: Yes (Other)
  Sender: FDA-Public Use
  Company Number: GB-1186660

PATIENT
  Age: 91 Year
  Sex: Female
  Weight: 54 kg

DRUGS (5)
  1. LACIDIPINE [Concomitant]
  2. FERROUS SULFATE TAB [Concomitant]
  3. LATANOPROST [Concomitant]
  4. ISOPTO PLAIN 0.5 % EYE DROPS (HYPOMELLOSE) [Suspect]
     Dosage: (OPHTHALMIC)
     Route: 047
     Dates: start: 20110516, end: 20110518
  5. OMEPRAZOLE [Concomitant]

REACTIONS (1)
  - EYE IRRITATION [None]
